FAERS Safety Report 6867419-0 (Version None)
Quarter: 2010Q2

REPORT INFORMATION
  Report Type: 
  Country: None (occurrence: None)
  Receive Date: 20100528
  Receipt Date: 20100528
  Transmission Date: 20101027
  Serious: No
  Sender: FDA-Public Use
  Company Number: 2010021255

PATIENT
  Sex: Female

DRUGS (1)
  1. TOVIAZ [Suspect]
     Indication: HYPERTONIC BLADDER
     Dates: start: 20100114

REACTIONS (3)
  - ABDOMINAL PAIN LOWER [None]
  - BLADDER PAIN [None]
  - INCORRECT DRUG ADMINISTRATION DURATION [None]
